FAERS Safety Report 9381418 (Version 2)
Quarter: 2013Q3

REPORT INFORMATION
  Report Type: Spontaneous
  Country: US (occurrence: US)
  Receive Date: 20130703
  Receipt Date: 20130906
  Transmission Date: 20140515
  Serious: Yes (Hospitalization, Other)
  Sender: FDA-Public Use
  Company Number: PHEH2013US013752

PATIENT
  Age: 72 Year
  Sex: Female
  Weight: 75 kg

DRUGS (18)
  1. AFINITOR [Suspect]
     Indication: BREAST CANCER
     Dosage: 10 MG, QD
     Route: 048
     Dates: start: 20130306, end: 20130405
  2. AFINITOR [Suspect]
     Dosage: 5 MG, QD
     Route: 048
  3. AROMASIN [Suspect]
     Indication: BREAST CANCER
     Dosage: 25 MG, UNK
     Route: 048
     Dates: start: 20130306, end: 20130531
  4. MAGIC MOUTHWASH [Concomitant]
     Dosage: UNK UKN, UNK
     Dates: start: 20130403
  5. NEXIUM [Concomitant]
     Dosage: 40 MG, UNK
     Route: 048
  6. BYSTOLIC [Concomitant]
     Dosage: 5 MG, UNK
  7. ASPIRIN [Concomitant]
     Dosage: 81 MG, UNK
  8. CAPECITABINE [Concomitant]
     Dosage: UNK UKN, UNK
     Dates: start: 20101215
  9. XELODA [Concomitant]
     Dosage: UNK UKN, UNK
     Dates: start: 20100922
  10. ALPRAZOLAM [Concomitant]
     Dosage: UNK UKN, UNK
     Dates: start: 20110406
  11. EFEXOR XR [Concomitant]
     Dosage: UNK UKN, UNK
     Dates: start: 20110406
  12. FASLODEX [Concomitant]
     Dosage: UNK UKN, UNK
     Dates: start: 20100922
  13. CALCIUM [Concomitant]
     Dosage: 1000 MG, DAILY
     Route: 048
  14. CRESTOR [Concomitant]
     Dosage: 5 MG, DAILY
     Route: 048
  15. DEXAMETHASONE [Concomitant]
     Dosage: UNK UKN, UNK
     Dates: start: 20130723
  16. GEMZAR [Concomitant]
     Dosage: UNK UKN, UNK
     Dates: start: 20130723
  17. CHOLECALCIFEROL [Concomitant]
     Dosage: 50000 U, UNK
     Route: 048
     Dates: start: 20130311, end: 20130603
  18. XGEVA [Concomitant]
     Dosage: 120 MG, UNK
     Route: 058
     Dates: start: 20110627, end: 20130501

REACTIONS (24)
  - Liver function test abnormal [Unknown]
  - Atelectasis [Unknown]
  - Hypomagnesaemia [Recovered/Resolved]
  - Hypocalcaemia [Recovered/Resolved]
  - Hyponatraemia [Recovered/Resolved]
  - Chest pain [Recovered/Resolved]
  - Respiratory failure [Recovered/Resolved]
  - Pneumonitis [Recovered/Resolved]
  - Pneumonia [Recovered/Resolved]
  - Hyperglycaemia [Recovered/Resolved]
  - Pyrexia [Recovered/Resolved]
  - Asthenia [Recovered/Resolved]
  - Dyspnoea exertional [Recovered/Resolved]
  - Cough [Recovered/Resolved]
  - Metastases to bone [Unknown]
  - Renal failure acute [Recovered/Resolved]
  - Hypokalaemia [Recovered/Resolved]
  - Hypophosphataemia [Recovered/Resolved]
  - Bundle branch block right [Unknown]
  - Arthropathy [Unknown]
  - Hypoproteinaemia [Recovered/Resolved]
  - Hypoalbuminaemia [Recovered/Resolved]
  - Arthralgia [Not Recovered/Not Resolved]
  - Mouth ulceration [Recovered/Resolved]
